FAERS Safety Report 13821951 (Version 2)
Quarter: 2017Q3

REPORT INFORMATION
  Report Type: Report from Study
  Country: BR (occurrence: BR)
  Receive Date: 20170801
  Receipt Date: 20170809
  Transmission Date: 20171127
  Serious: Yes (Death, Other)
  Sender: FDA-Public Use
  Company Number: BR-ELI_LILLY_AND_COMPANY-BR201707012399

PATIENT
  Age: 46 Year
  Sex: Female

DRUGS (3)
  1. GEMCITABINE HYDROCHLORIDE. [Suspect]
     Active Substance: GEMCITABINE HYDROCHLORIDE
     Indication: CERVIX CARCINOMA
     Dosage: 1000 MG/M2, CYCLICAL
     Route: 042
  2. CISPLATIN. [Concomitant]
     Active Substance: CISPLATIN
     Dosage: 40 MG/M2, WEEKLY (1/W)
     Route: 042
  3. CISPLATIN. [Concomitant]
     Active Substance: CISPLATIN
     Indication: CERVIX CARCINOMA
     Dosage: 35 MG/M2, CYCLICAL
     Route: 042

REACTIONS (8)
  - General physical health deterioration [Not Recovered/Not Resolved]
  - Diarrhoea [Unknown]
  - Vomiting [Fatal]
  - Haematotoxicity [Unknown]
  - Dehydration [Fatal]
  - Weight decreased [Unknown]
  - Nausea [Unknown]
  - Off label use [Recovered/Resolved]
